FAERS Safety Report 7793595-1 (Version None)
Quarter: 2011Q4

REPORT INFORMATION
  Report Type: 
  Country: None (occurrence: None)
  Receive Date: 20111003
  Receipt Date: 20110428
  Transmission Date: 20120403
  Serious: Yes (Other)
  Sender: FDA-Public Use
  Company Number: US-BAYER-2011-036634

PATIENT
  Age: 57 Year
  Sex: Male

DRUGS (6)
  1. DIGOXIN [Concomitant]
     Indication: ATRIAL FIBRILLATION
  2. HYDROCODONE [Concomitant]
     Indication: MUSCULOSKELETAL PAIN
     Dosage: UNK UNK, PRN
  3. LAMOTRIGINE [Concomitant]
  4. LEVITRA [Suspect]
     Indication: ERECTILE DYSFUNCTION
     Dosage: UNK UNK, PRN
     Route: 048
     Dates: start: 20070101
  5. COUMADIN [Concomitant]
  6. HYDROCODONE [Concomitant]
     Indication: BACK PAIN

REACTIONS (4)
  - AMNESIA [None]
  - FLUSHING [None]
  - DIZZINESS [None]
  - HEADACHE [None]
